FAERS Safety Report 24398852 (Version 4)
Quarter: 2024Q4

REPORT INFORMATION
  Report Type: Spontaneous
  Country: PY (occurrence: PY)
  Receive Date: 20241004
  Receipt Date: 20241202
  Transmission Date: 20250114
  Serious: Yes (Other)
  Sender: BIOMARIN
  Company Number: PY-SA-2024SA276611

PATIENT

DRUGS (3)
  1. LARONIDASE [Suspect]
     Active Substance: LARONIDASE
     Indication: Mucopolysaccharidosis I
     Dosage: 8.7 MG/3 VIALS, QW
     Route: 042
     Dates: end: 20240905
  2. LARONIDASE [Suspect]
     Active Substance: LARONIDASE
     Dosage: 8.7 MG/3 VIALS, QW
     Route: 042
  3. LARONIDASE [Suspect]
     Active Substance: LARONIDASE
     Dosage: 8.3 MG/3 VIALS, QW
     Route: 042
     Dates: start: 2024

REACTIONS (5)
  - Pneumonia [Recovering/Resolving]
  - Influenza like illness [Recovering/Resolving]
  - Oropharyngeal pain [Recovering/Resolving]
  - Pyrexia [Recovering/Resolving]
  - Lymphadenopathy [Recovering/Resolving]

NARRATIVE: CASE EVENT DATE: 20240913
